FAERS Safety Report 19478573 (Version 1)
Quarter: 2021Q2

REPORT INFORMATION
  Report Type: Spontaneous
  Country: TR (occurrence: TR)
  Receive Date: 20210630
  Receipt Date: 20210630
  Transmission Date: 20210717
  Serious: Yes (Other)
  Sender: FDA-Public Use
  Company Number: NVSC2020TR350246

PATIENT
  Age: 32 Year
  Sex: Male

DRUGS (1)
  1. KOLESTRAN TOZ [Suspect]
     Active Substance: CHOLESTYRAMINE
     Indication: PRODUCT USED FOR UNKNOWN INDICATION
     Dosage: UNK UNK, QID (4X1, IN THE MORNING, NOON, EVENING, BEFORE BEDTIME)
     Route: 065
     Dates: start: 2000

REACTIONS (3)
  - Diarrhoea [Unknown]
  - Short-bowel syndrome [Unknown]
  - Product supply issue [Unknown]
